FAERS Safety Report 23966625 (Version 1)
Quarter: 2024Q2

REPORT INFORMATION
  Report Type: Spontaneous
  Country: US (occurrence: US)
  Receive Date: 20240612
  Receipt Date: 20240612
  Transmission Date: 20240716
  Serious: Yes (Death, Hospitalization, Disabling, Other)
  Sender: FDA-Public Use
  Company Number: US-BAYER-2024A082568

PATIENT
  Age: 60 Year
  Sex: Male

DRUGS (2)
  1. TINACTIN [Suspect]
     Active Substance: TOLNAFTATE
  2. MENTHOL\ZINC OXIDE [Concomitant]
     Active Substance: MENTHOL\ZINC OXIDE

REACTIONS (14)
  - Mesothelioma [Fatal]
  - Pain [None]
  - Vomiting [None]
  - Intestinal obstruction [None]
  - Neoplasm [None]
  - Mesothelioma malignant [None]
  - Abdominal pain [None]
  - Emotional distress [None]
  - Insomnia [None]
  - Weight decreased [None]
  - Anxiety [None]
  - Fatigue [None]
  - Fear [None]
  - Discomfort [None]

NARRATIVE: CASE EVENT DATE: 20200101
